FAERS Safety Report 7900778-6 (Version None)
Quarter: 2011Q4

REPORT INFORMATION
  Report Type: 
  Country: None (occurrence: None)
  Receive Date: 20111108
  Receipt Date: 20111031
  Transmission Date: 20120403
  Serious: Yes (Other)
  Sender: FDA-Public Use
  Company Number: JP-ASTELLAS-2011JP007896

PATIENT
  Age: 59 Year
  Sex: Male

DRUGS (8)
  1. RHEUMATREX [Concomitant]
     Dosage: 6 MG, UNKNOWN/D
     Route: 048
     Dates: start: 20040410, end: 20040621
  2. FOLIC ACID [Concomitant]
     Dosage: 5 MG, UNKNOWN/D
     Route: 048
     Dates: start: 20040809
  3. PROGRAF [Suspect]
     Indication: RHEUMATOID ARTHRITIS
     Dosage: 1 MG, UNKNOWN/D
     Route: 048
     Dates: start: 20061216
  4. PREDNISOLONE [Concomitant]
     Dosage: 2 MG, UNKNOWN/D
     Route: 048
     Dates: start: 20040410
  5. MOBIC [Concomitant]
     Dosage: 10 MG, UNKNOWN/D
     Route: 048
     Dates: start: 20040410
  6. RHEUMATREX [Concomitant]
     Dosage: 8 MG, UNKNOWN/D
     Route: 048
     Dates: start: 20040410
  7. DIOVAN [Concomitant]
     Dosage: 160 MG, UNKNOWN/D
     Route: 048
     Dates: start: 20070324
  8. LANSOPRAZOLE [Concomitant]
     Dosage: 15 MG, UNKNOWN/D
     Route: 048
     Dates: start: 20101101

REACTIONS (1)
  - COLITIS ULCERATIVE [None]
